FAERS Safety Report 4633323-1 (Version None)
Quarter: 2005Q2

REPORT INFORMATION
  Report Type: 
  Country: None (occurrence: None)
  Receive Date: 20050408
  Receipt Date: 20050309
  Transmission Date: 20051028
  Serious: Yes (Congenital Anomaly, Other)
  Sender: FDA-Public Use
  Company Number: 2005BI005415

PATIENT
  Age: 0 Year
  Sex: Female
  Weight: 3.1752 kg

DRUGS (6)
  1. AVONEX [Suspect]
     Indication: MULTIPLE SCLEROSIS
  2. ALDOMET [Concomitant]
  3. ZOLOFT [Concomitant]
  4. PRENATAL VITAMINS [Concomitant]
  5. FOLIC ACID [Concomitant]
  6. GLYBURIDE [Concomitant]

REACTIONS (3)
  - ACROCHORDON [None]
  - CAESAREAN SECTION [None]
  - DRUG EXPOSURE DURING PREGNANCY [None]
